FAERS Safety Report 6984877-1 (Version None)
Quarter: 2010Q3

REPORT INFORMATION
  Report Type: 
  Country: None (occurrence: None)
  Receive Date: 20100915
  Receipt Date: 20100901
  Transmission Date: 20110219
  Serious: Yes (Other)
  Sender: FDA-Public Use
  Company Number: DE-SANOFI-AVENTIS-2010SA054681

PATIENT
  Sex: Male

DRUGS (2)
  1. ISCOVER [Suspect]
     Route: 065
  2. ISCOVER [Suspect]
     Indication: ANTIPLATELET THERAPY
     Route: 065

REACTIONS (3)
  - PRODUCT COUNTERFEIT [None]
  - PRODUCT QUALITY ISSUE [None]
  - THROMBOSIS [None]
